FAERS Safety Report 18697499 (Version 3)
Quarter: 2022Q1

REPORT INFORMATION
  Report Type: Spontaneous
  Country: US (occurrence: US)
  Receive Date: 20210105
  Receipt Date: 20220307
  Transmission Date: 20220423
  Serious: No
  Sender: FDA-Public Use
  Company Number: NVSC2020US345730

PATIENT
  Sex: Male

DRUGS (2)
  1. MEKINIST [Suspect]
     Active Substance: TRAMETINIB DIMETHYL SULFOXIDE
     Indication: Brain cancer metastatic
     Dosage: 0.5 MG, QD
     Route: 048
     Dates: start: 202009
  2. TAFINLAR [Suspect]
     Active Substance: DABRAFENIB MESYLATE
     Indication: Small intestine carcinoma
     Dosage: 50 MG, BID
     Route: 048
     Dates: start: 202112

REACTIONS (3)
  - Hypersensitivity [Unknown]
  - Diarrhoea [Unknown]
  - Product use in unapproved indication [Unknown]
